FAERS Safety Report 8066671-6 (Version None)
Quarter: 2012Q1

REPORT INFORMATION
  Report Type: 
  Country: None (occurrence: None)
  Receive Date: 20120124
  Receipt Date: 20120120
  Transmission Date: 20120608
  Serious: Yes (Life-Threatening)
  Sender: FDA-Public Use
  Company Number: PHEH2012US001823

PATIENT
  Age: 69 Year
  Sex: Male

DRUGS (4)
  1. GLIMEPIRIDE [Concomitant]
     Dosage: UNK UKN, UNK
  2. BENICAR [Concomitant]
     Dosage: 40 UKN, UNK
  3. TEKTURNA [Suspect]
     Indication: HYPERTENSION
     Dosage: 300 OT, QD
     Route: 048
     Dates: start: 20080101, end: 20120119
  4. NPH INSULIN [Concomitant]
     Dosage: UNK UKN, UNK

REACTIONS (3)
  - BLOOD CREATININE INCREASED [None]
  - PROTEINURIA [None]
  - GLOMERULAR FILTRATION RATE DECREASED [None]
